FAERS Safety Report 6604301-8 (Version None)
Quarter: 2010Q1

REPORT INFORMATION
  Report Type: 
  Country: None (occurrence: None)
  Receive Date: 20100226
  Receipt Date: 20090812
  Transmission Date: 20100710
  Serious: No
  Sender: FDA-Public Use
  Company Number: A0801899A

PATIENT
  Sex: Male

DRUGS (1)
  1. LAMICTAL CD [Suspect]
     Indication: DEPRESSION
     Dosage: 25MG SINGLE DOSE
     Route: 048
     Dates: start: 20090806

REACTIONS (1)
  - BLISTER [None]
